FAERS Safety Report 5514456-4 (Version None)
Quarter: 2007Q4

REPORT INFORMATION
  Report Type: 
  Country: None (occurrence: None)
  Receive Date: 20071113
  Receipt Date: 20070530
  Transmission Date: 20080405
  Serious: No
  Sender: FDA-Public Use
  Company Number: A0653484A

PATIENT
  Sex: Female

DRUGS (9)
  1. COREG [Suspect]
     Indication: HEART VALVE REPLACEMENT
     Dosage: 12.5MG TWICE PER DAY
     Route: 048
  2. ZETIA [Suspect]
     Dates: start: 20070401, end: 20070526
  3. COUMADIN [Concomitant]
  4. NEXIUM [Concomitant]
  5. POTASSIUM CHLORIDE [Concomitant]
  6. GLUCOSAMINE [Concomitant]
  7. FOSAMAX [Concomitant]
  8. OSCAL [Concomitant]
  9. TALACEN [Concomitant]

REACTIONS (1)
  - PRURITUS [None]
